FAERS Safety Report 19026189 (Version 2)
Quarter: 2021Q1

REPORT INFORMATION
  Report Type: Spontaneous
  Country: US (occurrence: US)
  Receive Date: 20210318
  Receipt Date: 20210318
  Transmission Date: 20210420
  Serious: No
  Sender: FDA-Public Use
  Company Number: US-PFIZER INC-2016311730

PATIENT
  Age: 85 Year
  Sex: Female

DRUGS (22)
  1. CLOBETASOL [CLOBETASOL PROPIONATE] [Concomitant]
     Dosage: UNK
  2. BETAMETHASONE DIPROPIONATE CREAM [Concomitant]
     Active Substance: BETAMETHASONE DIPROPIONATE
     Dosage: 0.05 %
  3. CYMBALTA [Concomitant]
     Active Substance: DULOXETINE HYDROCHLORIDE
     Dosage: 60 MG, DAILY (TAKE 1 CAP BY MOUTH DAILY)
     Route: 048
  4. ASPIRIN EC [Concomitant]
     Active Substance: ASPIRIN
     Dosage: 81 MG, DAILY
     Route: 048
  5. CHOLECALCIFEROL [Concomitant]
     Active Substance: CHOLECALCIFEROL
     Dosage: UNK, DAILY
     Route: 048
  6. AMARYL [Concomitant]
     Active Substance: GLIMEPIRIDE
     Dosage: 4 MG, DAILY (TAKE 1 TAB BY MOUTH 2 TIMES DAILY)
     Route: 048
  7. NIZORAL [Concomitant]
     Active Substance: KETOCONAZOLE
     Dosage: 2 % (2 % SHAMPOO)
  8. GLUCOPHAGE [Concomitant]
     Active Substance: METFORMIN HYDROCHLORIDE
     Dosage: 2000 MG, DAILY (TAKE 1 TAB BY MOUTH 2 TIMES DAILY WITH MEALS)
     Route: 048
  9. PRILOSEC [Concomitant]
     Active Substance: OMEPRAZOLE MAGNESIUM
     Dosage: 20 MG, DAILY (TAKE 20 MG BY MOUTH DAILY)
     Route: 048
  10. JANUVIA [Concomitant]
     Active Substance: SITAGLIPTIN PHOSPHATE
     Dosage: 100 MG, DAILY (TAKE 1 TAB BY MOUTH DAILY)
     Route: 048
  11. CLOBETASOL [CLOBETASOL PROPIONATE] [Concomitant]
     Dosage: UNK
  12. CYANOCOBALAMIN. [Concomitant]
     Active Substance: CYANOCOBALAMIN
     Dosage: 1000 UG, DAILY (TAKE 1 TAB BY MOUTH DAILY)
     Route: 048
  13. COZAAR [Concomitant]
     Active Substance: LOSARTAN POTASSIUM
     Dosage: 100 MG, DAILY (TAKE 1 TAB BY MOUTH 2 TIMES DAILY)
     Route: 048
  14. TRIAMCINOLONE [Concomitant]
     Active Substance: TRIAMCINOLONE
     Dosage: 0.1 %
  15. LYRICA [Suspect]
     Active Substance: PREGABALIN
     Dosage: 200 MG, 2X/DAY
     Route: 048
  16. CALCIUM CITRATE VITAMIN D3 [Concomitant]
     Dosage: UNK, DAILY
     Route: 048
  17. SYNTHROID [Concomitant]
     Active Substance: LEVOTHYROXINE SODIUM
     Dosage: 50 UG, DAILY (TAKE 1 TAB BY MOUTH DAILY)
     Route: 048
  18. CITRUCEL [Concomitant]
     Active Substance: METHYLCELLULOSE (4000 MPA.S)
     Dosage: UNK (TAKE BY MOUTH)
     Route: 048
  19. NYSTATIN AND TRIAMCINOLONE [Concomitant]
     Active Substance: NYSTATIN\TRIAMCINOLONE ACETONIDE
     Dosage: UNK (100000?0.1: 1 TAB UNIT/GM?% EX CREA)
  20. HYDROXYZINE HCL [Concomitant]
     Active Substance: HYDROXYZINE HYDROCHLORIDE
     Dosage: 25 MG
  21. ELOCON [Concomitant]
     Active Substance: MOMETASONE FUROATE
     Dosage: 0.1 %
  22. ZOCOR [Concomitant]
     Active Substance: SIMVASTATIN
     Dosage: 20 MG, DAILY (TAKE 1 TAB BY MOUTH DAILY)
     Route: 048

REACTIONS (1)
  - Intentional product misuse [Unknown]
